FAERS Safety Report 18597087 (Version 1)
Quarter: 2020Q4

REPORT INFORMATION
  Report Type: Not Available
  Country: None (occurrence: None)
  Receive Date: 20201209
  Receipt Date: 20201209
  Transmission Date: 20210114
  Serious: No
  Sender: FDA-Public Use
  Company Number: US-AKORN PHARMACEUTICALS-2020AKN00271

PATIENT
  Age: 20 Year
  Sex: Male

DRUGS (1)
  1. MYORISAN [Suspect]
     Active Substance: ISOTRETINOIN

REACTIONS (5)
  - Headache [None]
  - Back pain [None]
  - Arthralgia [None]
  - Nausea [None]
  - Vision blurred [None]
